FAERS Safety Report 7461992-X (Version None)
Quarter: 2011Q2

REPORT INFORMATION
  Report Type: 
  Country: None (occurrence: None)
  Receive Date: 20110506
  Receipt Date: 20110503
  Transmission Date: 20111010
  Serious: Yes (Death, Hospitalization)
  Sender: FDA-Public Use
  Company Number: PHFR2011GB02127

PATIENT
  Sex: Male

DRUGS (3)
  1. CLOZARIL [Suspect]
     Dosage: 25 MG MANE, 50 MG NOCTE
     Route: 048
  2. CLOZARIL [Suspect]
     Indication: PARKINSON'S DISEASE
     Dosage: UNK DF, UNK
     Dates: start: 20050629
  3. CLOZARIL [Suspect]
     Dosage: 25 MG, QD
     Dates: start: 20070101

REACTIONS (5)
  - ASTHENIA [None]
  - LOWER RESPIRATORY TRACT INFECTION [None]
  - BRONCHOPNEUMONIA [None]
  - PARKINSON'S DISEASE [None]
  - DEMENTIA WITH LEWY BODIES [None]
